FAERS Safety Report 5191431-3 (Version None)
Quarter: 2006Q4

REPORT INFORMATION
  Report Type: 
  Country: None (occurrence: None)
  Receive Date: 20061226
  Receipt Date: 20061219
  Transmission Date: 20070319
  Serious: Yes (Death, Hospitalization)
  Sender: FDA-Public Use
  Company Number: FI-AMGEN-UK204024

PATIENT
  Sex: Male

DRUGS (5)
  1. NEULASTA [Suspect]
     Indication: CHEMOTHERAPY
     Route: 065
  2. BLEOMYCIN [Suspect]
     Route: 065
  3. ADRIAMYCIN PFS [Concomitant]
     Route: 065
  4. VINBLASTINE [Concomitant]
     Route: 065
  5. DACARBAZINE [Concomitant]
     Route: 065

REACTIONS (3)
  - ACUTE RESPIRATORY DISTRESS SYNDROME [None]
  - DRUG INTERACTION [None]
  - INTERSTITIAL LUNG DISEASE [None]
